FAERS Safety Report 4594962-X (Version None)
Quarter: 2005Q1

REPORT INFORMATION
  Report Type: 
  Country: None (occurrence: None)
  Receive Date: 20050224
  Receipt Date: 20031215
  Transmission Date: 20050727
  Serious: Yes (Hospitalization)
  Sender: FDA-Public Use
  Company Number: GXKR2003GB00632

PATIENT
  Age: 45 Year
  Sex: Male

DRUGS (1)
  1. TRIMETHOPRIM [Suspect]
     Indication: EPIDIDYMITIS
     Dosage: 200 MG, BID, ORAL
     Route: 048
     Dates: start: 20031009, end: 20031023

REACTIONS (1)
  - IDIOPATHIC THROMBOCYTOPENIC PURPURA [None]
